FAERS Safety Report 24019487 (Version 2)
Quarter: 2024Q3

REPORT INFORMATION
  Report Type: Spontaneous
  Country: US (occurrence: US)
  Receive Date: 20240627
  Receipt Date: 20240712
  Transmission Date: 20241016
  Serious: Yes (Death, Hospitalization)
  Sender: TEVA
  Company Number: US-TEVA-VS-3212234

PATIENT
  Age: 33 Year
  Sex: Male

DRUGS (3)
  1. CISPLATIN [Suspect]
     Active Substance: CISPLATIN
     Indication: HER2 mutant non-small cell lung cancer
     Dosage: RECEIVED FIVE CYCLES
     Route: 065
  2. PEMETREXED [Suspect]
     Active Substance: PEMETREXED
     Indication: HER2 mutant non-small cell lung cancer
     Dosage: RECEIVED FIVE CYCLES
     Route: 065
  3. PEMETREXED [Suspect]
     Active Substance: PEMETREXED
     Indication: HER2 mutant non-small cell lung cancer
     Dosage: MAINTENANCE THERAPY
     Route: 065

REACTIONS (1)
  - Drug ineffective [Fatal]
